FAERS Safety Report 9749224 (Version 1)
Quarter: 2013Q4

REPORT INFORMATION
  Report Type: Spontaneous
  Country: US (occurrence: US)
  Receive Date: 20131212
  Receipt Date: 20131212
  Transmission Date: 20140711
  Serious: Yes (Other)
  Sender: FDA-Public Use
  Company Number: US-INCYTE CORPORATION-2013IN002479

PATIENT
  Sex: Female
  Weight: 53.06 kg

DRUGS (10)
  1. JAKAFI [Suspect]
     Indication: MYELOFIBROSIS
     Dosage: 20 MG, BID
     Route: 048
     Dates: start: 201306, end: 2013
  2. JANUMET [Concomitant]
  3. HYDROCHLOROTHIAZIDE W/LOSARTAN [Concomitant]
  4. METFORMIN HCL [Concomitant]
  5. GLIPIZIDE [Concomitant]
  6. CALCIUM [Concomitant]
  7. ACTOS [Concomitant]
  8. ASPIRIN [Concomitant]
  9. FOLIC ACID [Concomitant]
  10. MULTIVITAMIN [Concomitant]

REACTIONS (1)
  - Transfusion [Unknown]
